FAERS Safety Report 10040799 (Version 1)
Quarter: 2014Q1

REPORT INFORMATION
  Report Type: Spontaneous
  Country: US (occurrence: None)
  Receive Date: 20140326
  Receipt Date: 20140326
  Transmission Date: 20141002
  Serious: Yes (Other)
  Sender: FDA-Public Use
  Company Number: None

PATIENT
  Age: 60 Year
  Sex: Female
  Weight: 77.11 kg

DRUGS (2)
  1. OXYCODONE/APAP 5/325 ACTAVIS [Suspect]
     Indication: NECK PAIN
     Dosage: 6?EVERY 4 HOURS?TAKEN BY MOUTH
     Route: 048
     Dates: start: 20140217, end: 20140317
  2. OXYCODONE/APAP 5/325 ACTAVIS [Suspect]
     Indication: MUSCULOSKELETAL PAIN
     Dosage: 6?EVERY 4 HOURS?TAKEN BY MOUTH
     Route: 048
     Dates: start: 20140217, end: 20140317

REACTIONS (8)
  - Drug ineffective [None]
  - Abdominal discomfort [None]
  - Nausea [None]
  - Constipation [None]
  - Drug withdrawal syndrome [None]
  - Depression [None]
  - Product substitution issue [None]
  - Pain [None]
